FAERS Safety Report 25880795 (Version 2)
Quarter: 2025Q4

REPORT INFORMATION
  Report Type: Spontaneous
  Country: ZA (occurrence: ZA)
  Receive Date: 20251004
  Receipt Date: 20251030
  Transmission Date: 20260118
  Serious: Yes (Other)
  Sender: NOVARTIS
  Company Number: ZA-002147023-NVSC2025ZA151456

PATIENT
  Age: 68 Year
  Sex: Male

DRUGS (2)
  1. INCLISIRAN [Suspect]
     Active Substance: INCLISIRAN
     Indication: Low density lipoprotein increased
     Dosage: UNK
     Route: 065
     Dates: start: 20241125
  2. INCLISIRAN [Suspect]
     Active Substance: INCLISIRAN
     Dosage: UNK
     Route: 065
     Dates: start: 20250308

REACTIONS (1)
  - Oedema peripheral [Not Recovered/Not Resolved]
